FAERS Safety Report 19380575 (Version 1)
Quarter: 2021Q2

REPORT INFORMATION
  Report Type: Spontaneous
  Country: US (occurrence: US)
  Receive Date: 20210604
  Receipt Date: 20210604
  Transmission Date: 20210717
  Serious: Yes (Hospitalization)
  Sender: FDA-Public Use
  Company Number: None

PATIENT
  Age: 53 Year
  Sex: Female

DRUGS (4)
  1. XOLAIR [Suspect]
     Active Substance: OMALIZUMAB
     Indication: IDIOPATHIC URTICARIA
     Route: 058
     Dates: start: 20180731
  2. NAPROXEN DR [Concomitant]
     Active Substance: NAPROXEN
  3. LIDOCAINE OIN [Concomitant]
  4. XANAX XR [Concomitant]
     Active Substance: ALPRAZOLAM

REACTIONS (2)
  - Cerebral haemorrhage [None]
  - Therapy interrupted [None]

NARRATIVE: CASE EVENT DATE: 20210603
